FAERS Safety Report 12482986 (Version 1)
Quarter: 2016Q2

REPORT INFORMATION
  Report Type: Spontaneous
  Country: US (occurrence: US)
  Receive Date: 20160620
  Receipt Date: 20160620
  Transmission Date: 20160815
  Serious: Yes (Hospitalization, Other)
  Sender: FDA-Public Use
  Company Number: US-ELI_LILLY_AND_COMPANY-US201606006074

PATIENT
  Sex: Female

DRUGS (1)
  1. TRULICITY [Suspect]
     Active Substance: DULAGLUTIDE
     Indication: DIABETES MELLITUS
     Dosage: UNK
     Route: 065
     Dates: start: 20160328, end: 20160403

REACTIONS (21)
  - Blood magnesium decreased [Unknown]
  - Drug hypersensitivity [Unknown]
  - Lethargy [Unknown]
  - Urinary tract infection [Unknown]
  - Asthenia [Unknown]
  - Blood sodium decreased [Unknown]
  - Tremor [Unknown]
  - Nerve compression [Unknown]
  - Diarrhoea [Unknown]
  - Cystitis [Unknown]
  - Heart rate increased [Unknown]
  - Hypotension [Unknown]
  - Dysphagia [Unknown]
  - Dehydration [Unknown]
  - Depression [Unknown]
  - Gastritis [Unknown]
  - Vomiting [Unknown]
  - Acute kidney injury [Unknown]
  - Fatigue [Unknown]
  - Nausea [Unknown]
  - Swelling face [Unknown]
